FAERS Safety Report 8389188-8 (Version None)
Quarter: 2012Q2

REPORT INFORMATION
  Report Type: 
  Country: None (occurrence: None)
  Receive Date: 20120528
  Receipt Date: 20120524
  Transmission Date: 20120825
  Serious: Yes (Other)
  Sender: FDA-Public Use
  Company Number: PHHY2011CR85103

PATIENT
  Age: 84 Year
  Sex: Female

DRUGS (6)
  1. VALPROATE SODIUM [Concomitant]
  2. EXELON [Suspect]
     Indication: COGNITIVE DISORDER
     Dosage: 9.5 MG, DAILY
     Route: 062
  3. EXELON [Suspect]
     Dosage: 3 DF, ONCE/SINGLE
  4. HYDROCHLOROTHIAZIDE [Concomitant]
  5. AKATINOL [Concomitant]
  6. ENALAPRIL MALEATE [Concomitant]

REACTIONS (3)
  - ANGIOEDEMA [None]
  - WRONG TECHNIQUE IN DRUG USAGE PROCESS [None]
  - OVERDOSE [None]
